FAERS Safety Report 5219481-9 (Version None)
Quarter: 2007Q1

REPORT INFORMATION
  Report Type: 
  Country: None (occurrence: None)
  Receive Date: 20070124
  Receipt Date: 20070124
  Transmission Date: 20070707
  Serious: Yes (Life-Threatening, Hospitalization)
  Sender: FDA-Public Use
  Company Number: None

PATIENT
  Age: 78 Year
  Sex: Male
  Weight: 75.3 kg

DRUGS (7)
  1. GEMFIBROZIL [Suspect]
  2. LORATADINE [Concomitant]
  3. HYDRALAZINE HCL [Concomitant]
  4. INSULIN SYRINGE [Concomitant]
  5. ISOSORBIDE MONONITRATE [Concomitant]
  6. AMLODIPINE BESYLATE [Concomitant]
  7. CLOPIDOGREL BISULFATE [Concomitant]

REACTIONS (2)
  - HEPATIC ENZYME ABNORMAL [None]
  - RHABDOMYOLYSIS [None]
